FAERS Safety Report 7751819-0 (Version None)
Quarter: 2011Q3

REPORT INFORMATION
  Report Type: 
  Country: None (occurrence: None)
  Receive Date: 20110914
  Receipt Date: 20110914
  Transmission Date: 20111222
  Serious: Yes (Other)
  Sender: FDA-Public Use
  Company Number: None

PATIENT
  Age: 39 Year
  Sex: Female
  Weight: 74.8435 kg

DRUGS (1)
  1. LANSOPRAZOLE [Suspect]

REACTIONS (3)
  - ABDOMINAL PAIN [None]
  - DISCOMFORT [None]
  - PRODUCT SUBSTITUTION ISSUE [None]
